FAERS Safety Report 16105696 (Version 1)
Quarter: 2019Q2

REPORT INFORMATION
  Report Type: Spontaneous
  Country: US (occurrence: US)
  Receive Date: 20190321
  Receipt Date: 20190321
  Transmission Date: 20190711
  Serious: No
  Sender: FDA-Public Use
  Company Number: None

PATIENT
  Age: 38 Year
  Sex: Male
  Weight: 83.25 kg

DRUGS (2)
  1. QBREXZA [Suspect]
     Active Substance: GLYCOPYRRONIUM TOSYLATE
     Indication: HYPERHIDROSIS
     Route: 061
     Dates: start: 20190314, end: 20190317
  2. DAILY MULTIVITAMIN [Concomitant]
     Active Substance: VITAMINS

REACTIONS (7)
  - Nasal dryness [None]
  - Vision blurred [None]
  - Constipation [None]
  - Chapped lips [None]
  - Skin fissures [None]
  - Urinary retention [None]
  - Oropharyngeal pain [None]

NARRATIVE: CASE EVENT DATE: 20190317
